FAERS Safety Report 8223804-6 (Version None)
Quarter: 2012Q1

REPORT INFORMATION
  Report Type: 
  Country: None (occurrence: None)
  Receive Date: 20120321
  Receipt Date: 20120321
  Transmission Date: 20120608
  Serious: Yes (Life-Threatening, Hospitalization, Other)
  Sender: FDA-Public Use
  Company Number: None

PATIENT
  Sex: Female
  Weight: 83.914 kg

DRUGS (2)
  1. HUMIRA [Suspect]
     Indication: RHEUMATOID ARTHRITIS
     Dosage: 40 MG / 0.8 ML
     Route: 058
     Dates: start: 20101101, end: 20110801
  2. HUMIRA [Suspect]

REACTIONS (5)
  - COLITIS ISCHAEMIC [None]
  - HERPES ZOSTER [None]
  - NERVE INJURY [None]
  - RHEUMATOID ARTHRITIS [None]
  - CONDITION AGGRAVATED [None]
